FAERS Safety Report 14075195 (Version 1)
Quarter: 2017Q4

REPORT INFORMATION
  Report Type: Report from Study
  Country: US (occurrence: US)
  Receive Date: 20171010
  Receipt Date: 20171010
  Transmission Date: 20180321
  Serious: Yes (Hospitalization)
  Sender: FDA-Public Use
  Company Number: US-BAYER-2017-137473

PATIENT
  Age: 46 Year
  Sex: Female
  Weight: 44.9 kg

DRUGS (5)
  1. ADEMPAS [Suspect]
     Active Substance: RIOCIGUAT
     Indication: IDIOPATHIC PULMONARY FIBROSIS
     Dosage: 2 MG, TID
     Route: 048
  2. ADEMPAS [Suspect]
     Active Substance: RIOCIGUAT
     Indication: IDIOPATHIC PULMONARY FIBROSIS
     Dosage: UNK
     Dates: start: 20170620
  3. ADEMPAS [Suspect]
     Active Substance: RIOCIGUAT
     Indication: IDIOPATHIC PULMONARY FIBROSIS
     Dosage: 2.5 MG, UNK
  4. REMODULIN [Suspect]
     Active Substance: TREPROSTINIL
     Dosage: UNK
  5. APIXABAN [Concomitant]
     Active Substance: APIXABAN
     Dosage: UNK

REACTIONS (3)
  - Injection site rash [Unknown]
  - Vessel puncture site pruritus [Unknown]
  - Hospitalisation [None]

NARRATIVE: CASE EVENT DATE: 2017
